FAERS Safety Report 16999368 (Version 1)
Quarter: 2019Q4

REPORT INFORMATION
  Report Type: Spontaneous
  Country: US (occurrence: US)
  Receive Date: 20191105
  Receipt Date: 20191105
  Transmission Date: 20200122
  Serious: No
  Sender: FDA-Public Use
  Company Number: US-RADIUS HEALTH INC.-2019US003489

PATIENT
  Age: 54 Year
  Sex: Female

DRUGS (2)
  1. TYMLOS [Suspect]
     Active Substance: ABALOPARATIDE
     Indication: OSTEOPOROSIS POSTMENOPAUSAL
     Dosage: 80 MCG, DAILY
     Route: 058
     Dates: start: 20190821
  2. TYMLOS [Suspect]
     Active Substance: ABALOPARATIDE
     Dosage: 80 MCG, DAILY
     Route: 058
     Dates: start: 20190827

REACTIONS (14)
  - Product dose omission [Recovered/Resolved]
  - White blood cell count decreased [Unknown]
  - Device breakage [Unknown]
  - Palpitations [Unknown]
  - Product quality issue [Recovered/Resolved]
  - Delayed sleep phase [Unknown]
  - Anxiety [Unknown]
  - Irritability [Unknown]
  - Blood iron decreased [Unknown]
  - Dizziness [Unknown]
  - Headache [Recovered/Resolved]
  - Wrong technique in product usage process [Unknown]
  - Visual impairment [Unknown]
  - Hypertension [Unknown]

NARRATIVE: CASE EVENT DATE: 20191021
